FAERS Safety Report 22264040 (Version 1)
Quarter: 2023Q2

REPORT INFORMATION
  Report Type: Report from Study
  Country: US (occurrence: US)
  Receive Date: 20230428
  Receipt Date: 20230428
  Transmission Date: 20230721
  Serious: Yes (Hospitalization)
  Sender: FDA-Public Use
  Company Number: US-ABBVIE-4744525

PATIENT
  Sex: Female

DRUGS (1)
  1. HUMIRA [Suspect]
     Active Substance: ADALIMUMAB
     Indication: Product used for unknown indication
     Dosage: CITRATE FREE,  FORM STRENGTH: 40 MILLIGRAM
     Route: 058
     Dates: start: 20190426

REACTIONS (2)
  - Illness [Recovering/Resolving]
  - Confusional state [Unknown]
